FAERS Safety Report 9522421 (Version 1)
Quarter: 2013Q1

REPORT INFORMATION
  Report Type: Spontaneous
  Country: US (occurrence: None)
  Receive Date: 20130305
  Receipt Date: 20130305
  Transmission Date: 20140127
  Serious: Yes (Hospitalization)
  Sender: FDA-Public Use
  Company Number: 163-21880-12063570

PATIENT
  Age: 80 Year
  Sex: Male
  Weight: 77.57 kg

DRUGS (20)
  1. REVLIMID [Suspect]
     Indication: PLASMA CELL MYELOMA
     Dosage: 15 MG, QD X 21 DAYS, PO
     Route: 048
     Dates: start: 20120331, end: 20120610
  2. ACETAMINOPHEN (PARACETAMOL) (UNKNOWN) (PARACETAMOL) [Concomitant]
  3. ACYCLOVIR (ACICLOVIR) (UNKNOWN) [Concomitant]
  4. CLARITIN (LORATADINE) (UNKNOWN) [Concomitant]
  5. DEBROX (UREA HYDROGEN PEROXIDE) (UNKNOWN) [Concomitant]
  6. DEXAMETHASONE (DEXAMETHASONE) (UNKNOWN) [Concomitant]
  7. ENOXAPARIN (ENOXAPARIN) (UNKNOWN) [Concomitant]
  8. GUIATUSS (GUAIFENESIN) (UNKNOWN) [Concomitant]
  9. LIDOCAINE (LIDOCAINE) (UNKNOWN) [Concomitant]
  10. METOPROLOL (METOPROLOL) (UNKNOWN) [Concomitant]
  11. MOM (MAGENESIUM HYDROXIDE) (UNKNOWN) [Concomitant]
  12. MOUTHKOTE (OTHER THERAPEUTIC PRODUCTS) (UNKNOWN) [Concomitant]
  13. MEN^S MVI (MULTIVITAMINS) (UNKNOWN) [Concomitant]
  14. NORCO (VICODIN) (UNKNOWN) [Concomitant]
  15. OXYBUTYNIN (OXYBUTYNIN) (UNKNOWN) [Concomitant]
  16. RANITIDINE (RANITIDINE) (UNKNOWN) [Concomitant]
  17. SENNA (SENNA) (UNKNOWN) [Concomitant]
  18. TUMS WITH CALCIUM (CALCIUM CARBONATE) (UNKNOWN) [Concomitant]
  19. VITAMIN B (VITAMIN B) (UNKNOWN) [Concomitant]
  20. VITAMIN D3 (COLECALCIFEROL) (UNKNOWN) [Concomitant]

REACTIONS (2)
  - Bronchitis [None]
  - Asthenia [None]
